FAERS Safety Report 4576410-9 (Version None)
Quarter: 2005Q1

REPORT INFORMATION
  Report Type: 
  Country: None (occurrence: None)
  Receive Date: 20050207
  Receipt Date: 20050131
  Transmission Date: 20050727
  Serious: Yes (Death)
  Sender: FDA-Public Use
  Company Number: 2005AP00683

PATIENT
  Age: 50 Year
  Sex: Male

DRUGS (5)
  1. SEROQUEL [Suspect]
     Dosage: 200 MG DAILY PO
     Route: 048
     Dates: start: 20050127, end: 20050127
  2. AMLODIPINE [Concomitant]
  3. INSULIN [Concomitant]
  4. AMBROXOL [Concomitant]
  5. DIPHENHYDRAMINE HCL [Concomitant]

REACTIONS (10)
  - AGITATION [None]
  - ARRHYTHMIA [None]
  - BLOOD SODIUM DECREASED [None]
  - DRUG INTERACTION [None]
  - HYPOTENSION [None]
  - HYPOVENTILATION [None]
  - INSOMNIA [None]
  - OBESITY [None]
  - RESUSCITATION [None]
  - SLEEP APNOEA SYNDROME [None]
